FAERS Safety Report 6036196-8 (Version None)
Quarter: 2009Q1

REPORT INFORMATION
  Report Type: 
  Country: None (occurrence: None)
  Receive Date: 20090113
  Receipt Date: 20090108
  Transmission Date: 20090719
  Serious: Yes (Hospitalization)
  Sender: FDA-Public Use
  Company Number: HK-ROXANE LABORATORIES, INC.-2009-RO-00043RO

PATIENT
  Age: 59 Year
  Sex: Female

DRUGS (13)
  1. PROPRANOLOL [Suspect]
     Dosage: 30MG
  2. SERTRALINE [Suspect]
     Dosage: 50MG
  3. VERAPAMIL [Suspect]
     Dosage: 120MG
  4. LITHIUM SULFATE [Suspect]
     Indication: BIPOLAR DISORDER
     Dosage: 1320MG
  5. FLUPENTIXOL AND MELITRACEN [Suspect]
  6. FLUNITRAZEPAM [Suspect]
     Dosage: 2MG
  7. MIRTAZAPINE [Suspect]
     Dosage: 30MG
  8. AMILORIDE HCL AND HYDROCHLOROTHIAZIDE [Suspect]
     Indication: HYPERTENSION
  9. ACYCLOVIR [Concomitant]
     Indication: EVIDENCE BASED TREATMENT
     Route: 042
  10. CEFOTAXIME [Concomitant]
     Indication: EVIDENCE BASED TREATMENT
     Route: 042
  11. PHENYTOIN [Concomitant]
     Indication: STATUS EPILEPTICUS
  12. LORAZEPAM [Concomitant]
     Indication: STATUS EPILEPTICUS
  13. SUPPORTIVE MEASURES [Concomitant]
     Indication: STATUS EPILEPTICUS

REACTIONS (8)
  - CONFUSIONAL STATE [None]
  - DRUG INTERACTION [None]
  - DRUG TOXICITY [None]
  - MAJOR DEPRESSION [None]
  - MENTAL STATUS CHANGES [None]
  - NEUROTOXICITY [None]
  - PYREXIA [None]
  - STATUS EPILEPTICUS [None]
